FAERS Safety Report 8992033 (Version 2)
Quarter: 2013Q1

REPORT INFORMATION
  Report Type: Spontaneous
  Country: JP (occurrence: JP)
  Receive Date: 20121231
  Receipt Date: 20130131
  Transmission Date: 20140127
  Serious: No
  Sender: FDA-Public Use
  Company Number: PHHY2012JP118963

PATIENT
  Age: 74 Year
  Sex: Female

DRUGS (4)
  1. TEGRETOL [Suspect]
     Indication: CONVULSION PROPHYLAXIS
     Dosage: 200 MG, DAILY
     Route: 048
     Dates: start: 20120203, end: 20120210
  2. TEGRETOL [Suspect]
     Dosage: 400 MG, DAILY
     Route: 048
     Dates: start: 20120210, end: 20120215
  3. E KEPPRA [Concomitant]
  4. LEVETIRACETAM [Concomitant]
     Dosage: 2000 MG/DAY

REACTIONS (2)
  - Neutrophil count decreased [Unknown]
  - Disorientation [Recovered/Resolved]
